FAERS Safety Report 5728383-0 (Version None)
Quarter: 2008Q2

REPORT INFORMATION
  Report Type: 
  Country: None (occurrence: None)
  Receive Date: 20080430
  Receipt Date: 20080129
  Transmission Date: 20081010
  Serious: Yes (Other)
  Sender: FDA-Public Use
  Company Number: 001#1#2008-00075

PATIENT

DRUGS (1)
  1. ALPROSTADIL [Suspect]

REACTIONS (1)
  - PULMONARY EMBOLISM [None]
